FAERS Safety Report 21511201 (Version 1)
Quarter: 2022Q4

REPORT INFORMATION
  Report Type: Spontaneous
  Country: US (occurrence: US)
  Receive Date: 20221027
  Receipt Date: 20221027
  Transmission Date: 20230113
  Serious: Yes (Life-Threatening, Hospitalization)
  Sender: FDA-Public Use
  Company Number: US-drreddys-LIT/USA/22/0156319

PATIENT
  Age: 27 Year
  Sex: Female

DRUGS (25)
  1. PROPOFOL [Suspect]
     Active Substance: PROPOFOL
     Indication: Sedative therapy
     Dosage: CONTINUOUS INFUSION
  2. PROPOFOL [Suspect]
     Active Substance: PROPOFOL
     Indication: Intensive care unit delirium
     Dosage: 50 MCG/KG/MIN
  3. PROPOFOL [Suspect]
     Active Substance: PROPOFOL
     Dosage: 20 MCG/KG/MIN
  4. QUETIAPINE FUMARATE [Suspect]
     Active Substance: QUETIAPINE FUMARATE
     Indication: Intensive care unit delirium
  5. QUETIAPINE FUMARATE [Suspect]
     Active Substance: QUETIAPINE FUMARATE
  6. FENTANYL CITRATE [Suspect]
     Active Substance: FENTANYL CITRATE
     Indication: Sedative therapy
     Dosage: CONTINUOUS INFUSION
  7. FENTANYL CITRATE [Suspect]
     Active Substance: FENTANYL CITRATE
     Indication: Intensive care unit delirium
     Dosage: 300 MCG/HR
  8. FENTANYL CITRATE [Suspect]
     Active Substance: FENTANYL CITRATE
  9. LORAZEPAM [Suspect]
     Active Substance: LORAZEPAM
     Indication: Intensive care unit delirium
     Dosage: 8 MG/DAY AS NEEDED
  10. LORAZEPAM [Suspect]
     Active Substance: LORAZEPAM
     Dosage: 1-10 MG/HR CONTINUOUS INFUSION
  11. HALOPERIDOL [Suspect]
     Active Substance: HALOPERIDOL
     Indication: Intensive care unit delirium
     Dosage: 6 MG/DAY AS NEEDED
  12. DIAZEPAM [Suspect]
     Active Substance: DIAZEPAM
     Indication: Intensive care unit delirium
  13. FENTANYL [Suspect]
     Active Substance: FENTANYL
     Indication: Intensive care unit delirium
     Dosage: 200 MCG/HR
  14. FENTANYL [Suspect]
     Active Substance: FENTANYL
     Dosage: 300 MCG/HR
  15. METHADONE [Suspect]
     Active Substance: METHADONE HYDROCHLORIDE
     Indication: Intensive care unit delirium
  16. ALPRAZOLAM [Suspect]
     Active Substance: ALPRAZOLAM
     Indication: Intensive care unit delirium
  17. CLONAZEPAM [Suspect]
     Active Substance: CLONAZEPAM
     Indication: Intensive care unit delirium
  18. GABAPENTIN [Suspect]
     Active Substance: GABAPENTIN
     Indication: Intensive care unit delirium
  19. TRAZODONE [Suspect]
     Active Substance: TRAZODONE HYDROCHLORIDE
     Indication: Intensive care unit delirium
  20. MIDAZOLAM [Suspect]
     Active Substance: MIDAZOLAM
     Indication: Intensive care unit delirium
     Dosage: 1-10 MG/HR CONTINUOUS INFUSION
  21. DEXMEDETOMIDINE [Suspect]
     Active Substance: DEXMEDETOMIDINE
     Indication: Intensive care unit delirium
     Dosage: 0.1-0.7 MCG/KG/HR
  22. KETAMINE [Suspect]
     Active Substance: KETAMINE
     Indication: Intensive care unit delirium
     Dosage: 1-10 MCG/KG/MIN
  23. OXYCODONE [Suspect]
     Active Substance: OXYCODONE
     Indication: Intensive care unit delirium
  24. HYDROMORPHONE [Suspect]
     Active Substance: HYDROMORPHONE
     Indication: Intensive care unit delirium
     Dosage: AS NEEDED
     Route: 042
  25. SERTRALINE [Suspect]
     Active Substance: SERTRALINE HYDROCHLORIDE
     Indication: Intensive care unit delirium

REACTIONS (3)
  - Posterior reversible encephalopathy syndrome [Unknown]
  - Drug ineffective [Unknown]
  - Treatment failure [Unknown]
